FAERS Safety Report 9026118 (Version 1)
Quarter: 2012Q4

REPORT INFORMATION
  Report Type: Spontaneous
  Country: US (occurrence: None)
  Receive Date: 20121214
  Receipt Date: 20121214
  Transmission Date: 20130627
  Serious: No
  Sender: FDA-Public Use
  Company Number: None

PATIENT

DRUGS (2)
  1. DESLORATADINE [Suspect]
  2. CLARINEX [Suspect]

REACTIONS (4)
  - Product odour abnormal [None]
  - Headache [None]
  - Throat irritation [None]
  - Product substitution issue [None]
